FAERS Safety Report 5258066-5 (Version None)
Quarter: 2007Q1

REPORT INFORMATION
  Report Type: 
  Country: None (occurrence: None)
  Receive Date: 20070307
  Receipt Date: 20070227
  Transmission Date: 20070707
  Serious: Yes (Hospitalization, Other)
  Sender: FDA-Public Use
  Company Number: US-SHR-US-2007-007278

PATIENT
  Age: 33 Year
  Sex: Female
  Weight: 91 kg

DRUGS (3)
  1. MIRENA [Suspect]
     Dosage: 20 A?G/DAY, CONT
     Route: 015
     Dates: start: 20040101
  2. FLEXERIL [Concomitant]
     Indication: FIBROMYALGIA
  3. ZYRTEC [Concomitant]

REACTIONS (3)
  - GENITAL HAEMORRHAGE [None]
  - IUD MIGRATION [None]
  - POST PROCEDURAL COMPLICATION [None]
